FAERS Safety Report 20851625 (Version 1)
Quarter: 2022Q2

REPORT INFORMATION
  Report Type: Spontaneous
  Country: ES (occurrence: ES)
  Receive Date: 20220520
  Receipt Date: 20220520
  Transmission Date: 20220720
  Serious: Yes (Life-Threatening, Hospitalization)
  Sender: FDA-Public Use
  Company Number: None

PATIENT
  Age: 61 Year
  Sex: Female

DRUGS (8)
  1. INVOKANA [Suspect]
     Active Substance: CANAGLIFLOZIN
     Indication: Type 2 diabetes mellitus
     Route: 048
     Dates: start: 2017, end: 20220427
  2. HUMALOG [Concomitant]
     Active Substance: INSULIN LISPRO
     Indication: Type 2 diabetes mellitus
     Route: 058
     Dates: start: 2011
  3. INSULIN GLARGINE [Concomitant]
     Active Substance: INSULIN GLARGINE
     Indication: Type 2 diabetes mellitus
     Route: 058
     Dates: start: 2011
  4. METFORMINA AUROVITAS [Concomitant]
     Indication: Type 2 diabetes mellitus
     Route: 048
     Dates: start: 1997
  5. LOSARTAN ALTER [Concomitant]
     Indication: Hypertension
     Route: 048
     Dates: start: 2021
  6. BISOPROLOL AUROVITAS [Concomitant]
     Indication: Hypertension
     Route: 048
     Dates: start: 202203
  7. ATORVASTATINA [ATORVASTATIN CALCIUM] [Concomitant]
     Indication: Dyslipidaemia
     Route: 048
     Dates: start: 2021
  8. EZETIMIBA ALMUS [Concomitant]
     Indication: Dyslipidaemia
     Route: 048
     Dates: start: 2021

REACTIONS (4)
  - Vomiting [Recovered/Resolved]
  - Diabetic ketoacidosis [Recovered/Resolved]
  - Altered state of consciousness [Recovered/Resolved]
  - Nausea [Recovered/Resolved]

NARRATIVE: CASE EVENT DATE: 20220427
